FAERS Safety Report 23536076 (Version 2)
Quarter: 2024Q2

REPORT INFORMATION
  Report Type: Spontaneous
  Country: US (occurrence: US)
  Receive Date: 20240219
  Receipt Date: 20240423
  Transmission Date: 20240716
  Serious: No
  Sender: FDA-Public Use
  Company Number: US-JNJFOC-20240244167

PATIENT
  Age: 74 Year
  Sex: Male

DRUGS (1)
  1. BALVERSA [Suspect]
     Active Substance: ERDAFITINIB
     Indication: Bladder cancer
     Dosage: 2 X 4 MG ONCE A DAY; MDL0K02: EXPIRY- 31-MAR-2025
     Route: 048

REACTIONS (8)
  - Fingerprint loss [Unknown]
  - Pain in extremity [Unknown]
  - Stomatitis [Unknown]
  - Visual impairment [Unknown]
  - Nail discolouration [Unknown]
  - Onychomadesis [Unknown]
  - Alopecia [Unknown]
  - Product dose omission issue [Unknown]

NARRATIVE: CASE EVENT DATE: 20240215
